FAERS Safety Report 5532337-7 (Version None)
Quarter: 2007Q4

REPORT INFORMATION
  Report Type: 
  Country: None (occurrence: None)
  Receive Date: 20071129
  Receipt Date: 20071113
  Transmission Date: 20080405
  Serious: Yes (Other)
  Sender: FDA-Public Use
  Company Number: CHPA2007US12237

PATIENT
  Age: 53 Year
  Sex: Female

DRUGS (3)
  1. THERAFLU DAYTIME SEVERE COLD WARMING SYRUP (NCH)(PARACETAMOL, DEXTROME [Suspect]
     Indication: PHARYNGOLARYNGEAL PAIN
     Dosage: 1 TSP, PM, ORAL; 2 TSP, AM, ORAL;
     Route: 048
     Dates: start: 20071111, end: 20071111
  2. THERAFLU DAYTIME SEVERE COLD WARMING SYRUP (NCH)(PARACETAMOL, DEXTROME [Suspect]
     Indication: PHARYNGOLARYNGEAL PAIN
     Dosage: 1 TSP, PM, ORAL; 2 TSP, AM, ORAL;
     Route: 048
     Dates: start: 20071112, end: 20071112
  3. LEVOFLOXACIN [Suspect]
     Indication: PNEUMONIA

REACTIONS (3)
  - PNEUMONIA [None]
  - STOMACH DISCOMFORT [None]
  - VOMITING [None]
